FAERS Safety Report 7844263-9 (Version None)
Quarter: 2011Q4

REPORT INFORMATION
  Report Type: 
  Country: None (occurrence: None)
  Receive Date: 20111025
  Receipt Date: 20111011
  Transmission Date: 20120403
  Serious: Yes (Hospitalization, Disabling, Other)
  Sender: FDA-Public Use
  Company Number: US-ELI_LILLY_AND_COMPANY-US201011006945

PATIENT
  Sex: Female

DRUGS (6)
  1. FORTEO [Suspect]
     Indication: OSTEOPOROSIS
     Dosage: 20 UG, DAILY (1/D)
     Route: 058
     Dates: start: 20101113
  2. ZOMIG [Concomitant]
  3. FORTEO [Suspect]
     Dosage: 20 UG, DAILY (1/D)
     Route: 058
  4. FORTEO [Suspect]
     Dosage: 20 UG, QD
     Route: 058
  5. MIRALAX [Concomitant]
     Indication: CONSTIPATION
  6. FORTEO [Suspect]
     Dosage: 20 UG, QD
     Route: 058
     Dates: end: 20110829

REACTIONS (22)
  - LIMB INJURY [None]
  - INJECTION SITE HAEMATOMA [None]
  - NEUROLOGICAL SYMPTOM [None]
  - MUSCULAR WEAKNESS [None]
  - FALL [None]
  - FEELING ABNORMAL [None]
  - HYPOAESTHESIA [None]
  - AMNESIA [None]
  - DYSARTHRIA [None]
  - HAND FRACTURE [None]
  - ADVERSE EVENT [None]
  - DIZZINESS [None]
  - UNDERDOSE [None]
  - APHASIA [None]
  - BLINDNESS UNILATERAL [None]
  - FEMUR FRACTURE [None]
  - ABASIA [None]
  - HYPOAESTHESIA EYE [None]
  - UPPER LIMB FRACTURE [None]
  - ABDOMINAL DISTENSION [None]
  - MIGRAINE [None]
  - ABDOMINAL PAIN UPPER [None]
